FAERS Safety Report 12997855 (Version 1)
Quarter: 2016Q4

REPORT INFORMATION
  Report Type: Spontaneous
  Country: TR (occurrence: TR)
  Receive Date: 20161205
  Receipt Date: 20161205
  Transmission Date: 20170207
  Serious: Yes (Other)
  Sender: FDA-Public Use
  Company Number: ALCN2016TR007973

PATIENT
  Age: 42 Year
  Sex: Female

DRUGS (7)
  1. GENTAMICIN SULFATE. [Suspect]
     Active Substance: GENTAMICIN SULFATE
     Indication: KERATITIS
     Dosage: UNK
     Route: 061
  2. CEFAZOLIN SODIUM. [Suspect]
     Active Substance: CEFAZOLIN SODIUM
     Indication: KERATITIS
     Dosage: UNK
     Route: 061
  3. VIGAMOX [Suspect]
     Active Substance: MOXIFLOXACIN HYDROCHLORIDE
     Indication: CONJUNCTIVAL ULCER
     Dosage: 1 DF, QID
     Route: 047
  4. VIGAMOX [Suspect]
     Active Substance: MOXIFLOXACIN HYDROCHLORIDE
     Indication: CORNEAL INFILTRATES
  5. VORICONAZOLE. [Suspect]
     Active Substance: VORICONAZOLE
     Indication: CORNEAL INFILTRATES
  6. MOXIFLOXACIN. [Suspect]
     Active Substance: MOXIFLOXACIN
     Indication: KERATITIS
     Dosage: UNK
     Route: 047
  7. VORICONAZOLE. [Suspect]
     Active Substance: VORICONAZOLE
     Indication: CONJUNCTIVAL ULCER
     Dosage: 1 DF, QH
     Route: 047

REACTIONS (11)
  - Ulcerative keratitis [Recovered/Resolved]
  - Condition aggravated [Unknown]
  - Corneal infiltrates [Recovered/Resolved]
  - Corneal thinning [Recovered/Resolved]
  - Lacrimation increased [Recovered/Resolved]
  - Conjunctival ulcer [Recovered/Resolved]
  - Eye pain [Recovered/Resolved]
  - Conjunctival hyperaemia [Recovered/Resolved]
  - Ocular hyperaemia [Recovered/Resolved]
  - Visual acuity reduced [Recovered/Resolved]
  - Foreign body sensation in eyes [Recovered/Resolved]
